FAERS Safety Report 4956300-X (Version None)
Quarter: 2006Q1

REPORT INFORMATION
  Report Type: 
  Country: None (occurrence: None)
  Receive Date: 20060323
  Receipt Date: 20060314
  Transmission Date: 20060701
  Serious: Yes (Hospitalization, Other)
  Sender: FDA-Public Use
  Company Number: 2006-01-1633

PATIENT
  Age: 77 Year
  Sex: Male

DRUGS (8)
  1. DIPROSONE [Suspect]
     Indication: DRUG ERUPTION
     Dosage: TOP-DERM
     Route: 061
     Dates: start: 20051123
  2. DIPROSONE [Suspect]
     Indication: VASCULITIS
     Dosage: TOP-DERM
     Route: 061
     Dates: start: 20051123
  3. GURONSAN EFFERVESCENT TABLETS [Suspect]
     Indication: ASTHENIA
     Dosage: ORAL
     Route: 048
  4. LOCOID [Suspect]
     Indication: RASH
     Dosage: TOP-DERM
     Route: 061
     Dates: start: 20051109, end: 20051123
  5. LAMISIL [Suspect]
     Indication: RASH
     Dosage: TOP-DERM
     Route: 061
     Dates: start: 20051109, end: 20051123
  6. SOLUPRED EFFERVESCENT TABLETS [Suspect]
     Indication: RASH
     Dosage: ORAL
     Route: 048
     Dates: start: 20051201, end: 20051228
  7. ACETAMINOPHEN [Concomitant]
  8. EBASTINE [Concomitant]

REACTIONS (7)
  - ACNE [None]
  - DERMATITIS EXFOLIATIVE [None]
  - DRUG ERUPTION [None]
  - PARAKERATOSIS [None]
  - SKIN EXFOLIATION [None]
  - TOXIC SKIN ERUPTION [None]
  - VASCULITIS [None]
